FAERS Safety Report 19621517 (Version 1)
Quarter: 2021Q3

REPORT INFORMATION
  Report Type: Spontaneous
  Country: US (occurrence: US)
  Receive Date: 20210728
  Receipt Date: 20210728
  Transmission Date: 20211014
  Serious: No
  Sender: FDA-Public Use
  Company Number: US-ORGANON-O2107USA001832

PATIENT
  Age: 61 Year
  Sex: Male

DRUGS (2)
  1. MOMETASONE FUROATE (WARRICK) [Suspect]
     Active Substance: MOMETASONE FUROATE
     Indication: DERMATITIS CONTACT
     Dosage: UNK
     Route: 061
  2. FLUOCINONIDE. [Suspect]
     Active Substance: FLUOCINONIDE
     Indication: DERMATITIS CONTACT
     Dosage: UNK
     Route: 061

REACTIONS (1)
  - Drug ineffective [Unknown]
